FAERS Safety Report 8955199 (Version 1)
Quarter: 2012Q4

REPORT INFORMATION
  Report Type: 
  Country: US (occurrence: US)
  Receive Date: 20121210
  Receipt Date: 20121210
  Transmission Date: 20130627
  Serious: No
  Sender: FDA-Public Use
  Company Number: US-BIOGENIDEC-2012BI056141

PATIENT

DRUGS (1)
  1. TYSABRI [Suspect]
     Indication: ACCIDENTAL EXPOSURE TO PRODUCT
     Dates: start: 20121126, end: 20121126

REACTIONS (1)
  - Exposure via direct contact [Recovered/Resolved]
